FAERS Safety Report 8987107 (Version 1)
Quarter: 2012Q4

REPORT INFORMATION
  Report Type: Report from Study
  Country: DE (occurrence: DE)
  Receive Date: 20121227
  Receipt Date: 20121227
  Transmission Date: 20130627
  Serious: Yes (Hospitalization)
  Sender: FDA-Public Use
  Company Number: PHHO2011DE01814

PATIENT
  Age: 3 Year
  Sex: Male
  Weight: 14.8 kg

DRUGS (1)
  1. ACZ885 [Suspect]
     Indication: JUVENILE ARTHRITIS
     Dosage: UNK
     Dates: start: 20100517

REACTIONS (3)
  - Otitis media [Recovered/Resolved]
  - Post procedural haemorrhage [Recovered/Resolved]
  - Hyperplasia [Recovered/Resolved]
